FAERS Safety Report 4432416-1 (Version None)
Quarter: 2004Q3

REPORT INFORMATION
  Report Type: 
  Country: None (occurrence: None)
  Receive Date: 20040825
  Receipt Date: 20040727
  Transmission Date: 20050211
  Serious: Yes (Other)
  Sender: FDA-Public Use
  Company Number: DE-GLAXOSMITHKLINE-D0044323A

PATIENT
  Age: 23 Year
  Sex: Female

DRUGS (2)
  1. LAMICTAL [Suspect]
     Indication: EPILEPSY
     Route: 048
  2. PARACODIN BITARTRATE TAB [Suspect]
     Indication: COUGH
     Route: 048

REACTIONS (3)
  - DRUG INTERACTION [None]
  - EPILEPSY [None]
  - INSOMNIA [None]
